FAERS Safety Report 19769203 (Version 2)
Quarter: 2021Q3

REPORT INFORMATION
  Report Type: Report from Study
  Country: DE (occurrence: DE)
  Receive Date: 20210831
  Receipt Date: 20210907
  Transmission Date: 20211014
  Serious: Yes (Hospitalization)
  Sender: FDA-Public Use
  Company Number: DE-ROCHE-2832070

PATIENT
  Age: 34 Year
  Sex: Female
  Weight: 47 kg

DRUGS (9)
  1. CARBOPLATIN. [Suspect]
     Active Substance: CARBOPLATIN
     Indication: CERVIX CARCINOMA RECURRENT
     Dosage: AUC 5?MOST RECENT DOSE OF CARBOPLATIN ON 20/APR/2021.
     Route: 042
     Dates: start: 20210211
  2. EFFENTORA [Concomitant]
     Active Substance: FENTANYL CITRATE
  3. NOVALGIN (METAMIZOLE SODIUM) [Concomitant]
     Active Substance: METAMIZOLE SODIUM
  4. DUROGESIC [Concomitant]
     Active Substance: FENTANYL
  5. ARNICA [Concomitant]
     Active Substance: ARNICA MONTANA FLOWER
  6. LYRICA [Concomitant]
     Active Substance: PREGABALIN
  7. ATEZOLIZUMAB. [Suspect]
     Active Substance: ATEZOLIZUMAB
     Indication: CERVIX CARCINOMA RECURRENT
     Dosage: MOST RECENT DOSE OF ATEZOLIZUMAB ON 20/APR/2021.
     Route: 041
     Dates: start: 20210211
  8. PACLITAXEL. [Suspect]
     Active Substance: PACLITAXEL
     Indication: CERVIX CARCINOMA RECURRENT
     Dosage: MOST RECENT DOSE OF PACLITAXEL ON 20/APR/2021.
     Route: 042
     Dates: start: 20210211
  9. BEVACIZUMAB. [Suspect]
     Active Substance: BEVACIZUMAB
     Indication: CERVIX CARCINOMA RECURRENT
     Dosage: MOST RECENT DOSE OF BEVACIZUMAB ON 20/APR/2021.
     Route: 042
     Dates: start: 20210211

REACTIONS (1)
  - Anal ulcer [Recovered/Resolved with Sequelae]

NARRATIVE: CASE EVENT DATE: 20210510
